FAERS Safety Report 8887877 (Version 1)
Quarter: 2012Q4

REPORT INFORMATION
  Report Type: Spontaneous
  Country: US (occurrence: None)
  Receive Date: 20121101
  Receipt Date: 20121101
  Transmission Date: 20130627
  Serious: No
  Sender: FDA-Public Use
  Company Number: None

PATIENT
  Age: 60 Year
  Sex: Male
  Weight: 83.7 kg

DRUGS (1)
  1. TICAGRELOR [Suspect]
     Indication: CORONARY STENT PLACEMENT
     Route: 048
     Dates: start: 20120917, end: 20121029

REACTIONS (4)
  - Device occlusion [None]
  - Refusal of treatment by patient [None]
  - Dyspnoea [None]
  - Chest pain [None]
